FAERS Safety Report 10670573 (Version 1)
Quarter: 2014Q4

REPORT INFORMATION
  Report Type: Report from Study
  Country: US (occurrence: US)
  Receive Date: 20141223
  Receipt Date: 20141223
  Transmission Date: 20150529
  Serious: Yes (Death, Hospitalization, Other)
  Sender: FDA-Public Use
  Company Number: PHHY2014US166231

PATIENT
  Age: 51 Year
  Sex: Male
  Weight: 74.1 kg

DRUGS (14)
  1. AMBRISENTAN [Suspect]
     Active Substance: AMBRISENTAN
     Indication: PRODUCT USED FOR UNKNOWN INDICATION
     Route: 065
  2. LEVOTHYROXINE [Concomitant]
     Active Substance: LEVOTHYROXINE
     Indication: PRODUCT USED FOR UNKNOWN INDICATION
     Dosage: 175 UG, QD
     Route: 048
     Dates: start: 20140327
  3. PANTOPRAZOLE [Concomitant]
     Active Substance: PANTOPRAZOLE SODIUM
     Indication: PRODUCT USED FOR UNKNOWN INDICATION
     Dosage: 40 MG, QD
     Route: 048
     Dates: start: 20130624
  4. SOVALDI [Suspect]
     Active Substance: SOFOSBUVIR
     Indication: HEPATITIS C
     Dosage: 400 MG, QD
     Route: 048
     Dates: start: 20140415, end: 20140706
  5. OXYBUTYNIN [Concomitant]
     Active Substance: OXYBUTYNIN
     Indication: PRODUCT USED FOR UNKNOWN INDICATION
     Dosage: 5 MG, QD
     Route: 048
     Dates: start: 20131021
  6. HYOSCYAMINE SULFATE. [Concomitant]
     Active Substance: HYOSCYAMINE SULFATE
     Indication: PRODUCT USED FOR UNKNOWN INDICATION
     Dosage: 0.125 MG, ONE IN 4 HOUR
     Route: 048
  7. VALGANCICLOVIR [Concomitant]
     Active Substance: VALGANCICLOVIR
     Indication: PRODUCT USED FOR UNKNOWN INDICATION
     Dosage: 450 MG, ONE IN TWO DAY
     Route: 048
  8. NEORAL [Concomitant]
     Active Substance: CYCLOSPORINE
     Indication: PRODUCT USED FOR UNKNOWN INDICATION
     Dosage: 25 MG, BID
     Route: 048
  9. TAMSULOSIN [Concomitant]
     Active Substance: TAMSULOSIN
     Indication: PRODUCT USED FOR UNKNOWN INDICATION
     Dosage: 0.4 MG, QD
     Route: 048
  10. MAGNESIUM OXIDE. [Concomitant]
     Active Substance: MAGNESIUM OXIDE
     Indication: PRODUCT USED FOR UNKNOWN INDICATION
     Dosage: 800 MG, BID
     Route: 048
  11. RIFAXIMIN [Concomitant]
     Active Substance: RIFAXIMIN
     Indication: PRODUCT USED FOR UNKNOWN INDICATION
     Dosage: 550 MG, BID
     Route: 048
  12. ICL670A [Suspect]
     Active Substance: DEFERASIROX
     Indication: MYELODYSPLASTIC SYNDROME
     Route: 065
  13. SIMEPREVIR [Suspect]
     Active Substance: SIMEPREVIR
     Indication: HEPATITIS C
     Dosage: 150 MG, QD
     Route: 048
     Dates: start: 20140415, end: 20140706
  14. URSODIOL. [Concomitant]
     Active Substance: URSODIOL
     Indication: PRODUCT USED FOR UNKNOWN INDICATION
     Dosage: 300 MG, TID
     Route: 048

REACTIONS (32)
  - Weaning failure [Unknown]
  - Encephalopathy [Fatal]
  - Decreased appetite [Unknown]
  - Asthenia [Unknown]
  - Pleural effusion [Unknown]
  - Right ventricular systolic pressure increased [Unknown]
  - Pulmonary oedema [Unknown]
  - Renal tubular necrosis [Unknown]
  - Dilatation intrahepatic duct acquired [Unknown]
  - Pulseless electrical activity [Unknown]
  - Left atrial dilatation [Unknown]
  - Acute kidney injury [Unknown]
  - Glomerulonephritis membranous [Unknown]
  - Renal failure [Unknown]
  - Hepatic steatosis [Unknown]
  - Mucosal dryness [Unknown]
  - Proteinuria [Unknown]
  - Aspiration [Unknown]
  - Hepatorenal syndrome [Unknown]
  - Hypoxia [Unknown]
  - Abdominal distension [Unknown]
  - Dizziness [Unknown]
  - Fall [Unknown]
  - Nephrosclerosis [Unknown]
  - Balance disorder [Unknown]
  - Mental disorder [Unknown]
  - Acute respiratory distress syndrome [Fatal]
  - Pneumonia aspiration [Unknown]
  - Renal haemorrhage [Unknown]
  - Sepsis [Unknown]
  - Renal haematoma [Unknown]
  - Asterixis [Unknown]

NARRATIVE: CASE EVENT DATE: 20140703
